FAERS Safety Report 5278848-3 (Version None)
Quarter: 2007Q1

REPORT INFORMATION
  Report Type: 
  Country: None (occurrence: None)
  Receive Date: 20070328
  Receipt Date: 20070319
  Transmission Date: 20070707
  Serious: Yes (Death)
  Sender: FDA-Public Use
  Company Number: GB-JNJFOC-20070104027

PATIENT
  Age: 45 Year
  Sex: Female

DRUGS (3)
  1. CAELYX [Suspect]
     Indication: OVARIAN CANCER
     Dosage: 40 MG/M2
     Route: 042
  2. DEXAMETHASONE [Concomitant]
     Indication: PREMEDICATION
     Route: 042
  3. GRANISETRON [Concomitant]
     Indication: PREMEDICATION
     Route: 042

REACTIONS (6)
  - CHEST DISCOMFORT [None]
  - CONFUSIONAL STATE [None]
  - DEATH [None]
  - HOT FLUSH [None]
  - INFUSION RELATED REACTION [None]
  - LOSS OF CONSCIOUSNESS [None]
